FAERS Safety Report 4420666-X (Version None)
Quarter: 2004Q3

REPORT INFORMATION
  Report Type: 
  Country: None (occurrence: None)
  Receive Date: 20040809
  Receipt Date: 20040420
  Transmission Date: 20050211
  Serious: No
  Sender: FDA-Public Use
  Company Number: US-GLAXOSMITHKLINE-A0507681A

PATIENT
  Age: 45 Year
  Sex: Female

DRUGS (3)
  1. PAXIL [Suspect]
     Route: 048
     Dates: start: 20030401, end: 20030701
  2. PAXIL [Suspect]
     Dosage: 12.5MG PER DAY
     Route: 048
     Dates: start: 20040418
  3. KLONOPIN [Concomitant]

REACTIONS (5)
  - EYE IRRITATION [None]
  - INFLUENZA LIKE ILLNESS [None]
  - MEDICATION ERROR [None]
  - SOMNOLENCE [None]
  - URINARY TRACT INFECTION [None]
